FAERS Safety Report 4752631-7 (Version None)
Quarter: 2005Q3

REPORT INFORMATION
  Report Type: 
  Country: None (occurrence: None)
  Receive Date: 20050823
  Receipt Date: 20050805
  Transmission Date: 20060218
  Serious: Yes (Other)
  Sender: FDA-Public Use
  Company Number: EWC050644505

PATIENT
  Age: 17 Year
  Sex: Male
  Weight: 76 kg

DRUGS (2)
  1. OLANZAPINE [Suspect]
     Indication: SCHIZOPHRENIA
     Dosage: 20 MG DAY
     Dates: start: 20041201
  2. ZOLOFT [Concomitant]

REACTIONS (7)
  - AGGRESSION [None]
  - BLEPHAROSPASM [None]
  - CONJUNCTIVITIS [None]
  - DRY EYE [None]
  - DYSKINESIA [None]
  - TIC [None]
  - WEIGHT INCREASED [None]
